FAERS Safety Report 14095202 (Version 2)
Quarter: 2017Q4

REPORT INFORMATION
  Report Type: Spontaneous
  Country: PL (occurrence: PL)
  Receive Date: 20171016
  Receipt Date: 20171029
  Transmission Date: 20180321
  Serious: Yes (Other)
  Sender: FDA-Public Use
  Company Number: PL-MYLANLABS-2017M1063265

PATIENT
  Age: 46 Year
  Sex: Male

DRUGS (3)
  1. GABAPENTIN. [Suspect]
     Active Substance: GABAPENTIN
     Indication: PRODUCT USED FOR UNKNOWN INDICATION
     Dosage: 1800 MG, QD
  2. OXCARBAZEPINE. [Suspect]
     Active Substance: OXCARBAZEPINE
     Dosage: 2100 MG, QD
     Dates: start: 2006
  3. OXCARBAZEPINE. [Suspect]
     Active Substance: OXCARBAZEPINE
     Indication: SEIZURE
     Dosage: 1800 MG, UNK
     Dates: start: 2006

REACTIONS (5)
  - Drug effect incomplete [Unknown]
  - Pain in extremity [Unknown]
  - Seizure [Unknown]
  - Hypoaesthesia [Unknown]
  - Product substitution issue [Unknown]

NARRATIVE: CASE EVENT DATE: 2006
